FAERS Safety Report 7764258-3 (Version None)
Quarter: 2011Q3

REPORT INFORMATION
  Report Type: 
  Country: None (occurrence: None)
  Receive Date: 20110919
  Receipt Date: 20110912
  Transmission Date: 20111222
  Serious: Yes (Other)
  Sender: FDA-Public Use
  Company Number: 1040400

PATIENT
  Age: 56 Year
  Sex: Female
  Weight: 61 kg

DRUGS (7)
  1. DEXAMETHASONE [Concomitant]
  2. BENADRYL [Concomitant]
  3. ZOFRAN [Concomitant]
  4. PACLITAXEL [Concomitant]
  5. RANITIDINE [Concomitant]
  6. CARBOPLATIN [Suspect]
     Indication: PRODUCT USED FOR UNKNOWN INDICATION
     Dosage: 504.0MG, 1 EVERY 3 WEEKS, INTRAVENOUS
     Route: 042
  7. LORAZEPAM [Concomitant]

REACTIONS (6)
  - FLUSHING [None]
  - NAUSEA [None]
  - FEELING ABNORMAL [None]
  - ABDOMINAL PAIN UPPER [None]
  - DYSPNOEA [None]
  - PHARYNGEAL OEDEMA [None]
